FAERS Safety Report 12450786 (Version 1)
Quarter: 2016Q2

REPORT INFORMATION
  Report Type: Spontaneous
  Country: US (occurrence: None)
  Receive Date: 20160608
  Receipt Date: 20160608
  Transmission Date: 20160815
  Serious: Yes (Hospitalization)
  Sender: FDA-Public Use
  Company Number: None

PATIENT
  Age: 69 Year
  Sex: Female
  Weight: 63.5 kg

DRUGS (11)
  1. AMIODORONE [Suspect]
     Active Substance: AMIODARONE
     Indication: ATRIAL FIBRILLATION
  2. CLONAZEPAN [Concomitant]
     Active Substance: CLONAZEPAM
  3. LASIX [Concomitant]
     Active Substance: FUROSEMIDE
  4. FLOVENT HFA [Concomitant]
     Active Substance: FLUTICASONE PROPIONATE
  5. CARVEDILOL. [Concomitant]
     Active Substance: CARVEDILOL
  6. POTASSIUM MAGNESIUM [Concomitant]
  7. CLOPIDOGREL [Concomitant]
     Active Substance: CLOPIDOGREL BISULFATE
  8. ATROVENT [Concomitant]
     Active Substance: IPRATROPIUM BROMIDE
  9. B2 [Concomitant]
  10. MULTIVIT [Concomitant]
     Active Substance: VITAMINS
  11. BABY ASPIRIN [Concomitant]
     Active Substance: ASPIRIN

REACTIONS (5)
  - Toxicity to various agents [None]
  - Liver disorder [None]
  - Pulmonary fibrosis [None]
  - Tremor [None]
  - Renal disorder [None]

NARRATIVE: CASE EVENT DATE: 20160211
